FAERS Safety Report 4321176-0 (Version None)
Quarter: 2004Q1

REPORT INFORMATION
  Report Type: 
  Country: None (occurrence: None)
  Receive Date: 20040322
  Receipt Date: 20040312
  Transmission Date: 20041129
  Serious: Yes (Hospitalization, Other)
  Sender: FDA-Public Use
  Company Number: WAES 0403ESP00027

PATIENT
  Age: 5 Year
  Sex: Female

DRUGS (6)
  1. ALBUTEROL SULFATE [Concomitant]
     Indication: ASTHMA
  2. AMOXICILLIN AND CLAVULANATE POTASSIUM [Concomitant]
     Indication: OTITIS MEDIA ACUTE
     Dates: start: 20031201
  3. BUDESONIDE [Concomitant]
     Indication: ASTHMA
  4. CEFIXIME [Concomitant]
     Indication: URINARY TRACT INFECTION
     Dates: start: 20031201
  5. ERYTHROMYCIN [Concomitant]
     Indication: CAMPYLOBACTER GASTROENTERITIS
     Dates: start: 20031201, end: 20031201
  6. SINGULAIR [Suspect]
     Indication: ASTHMA
     Route: 048
     Dates: start: 20031121, end: 20031222

REACTIONS (8)
  - CAMPYLOBACTER GASTROENTERITIS [None]
  - CYSTITIS ESCHERICHIA [None]
  - ESCHERICHIA URINARY TRACT INFECTION [None]
  - GASTROENTERITIS ROTAVIRUS [None]
  - OTITIS MEDIA ACUTE [None]
  - PROSTRATION [None]
  - PYREXIA [None]
  - VIRAL PHARYNGITIS [None]
